FAERS Safety Report 23353572 (Version 1)
Quarter: 2023Q4

REPORT INFORMATION
  Report Type: Spontaneous
  Country: DE (occurrence: DE)
  Receive Date: 20231231
  Receipt Date: 20231231
  Transmission Date: 20240109
  Serious: Yes (Disabling)
  Sender: FDA-Public Use
  Company Number: DE-ALMIRALL-DE-2023-4498

PATIENT
  Age: 83 Year
  Sex: Female
  Weight: 55 kg

DRUGS (1)
  1. KLISYRI [Suspect]
     Active Substance: TIRBANIBULIN
     Indication: Actinic keratosis
     Dosage: 1X 250 MG PER DAY FOR 5 DAYS/ON THE FACE AND SURFACE OF THE TREATED AREA (CM2) WAS 6 CM2.
     Route: 061
     Dates: start: 20221129, end: 20221130

REACTIONS (1)
  - Hypersensitivity [Recovered/Resolved]

NARRATIVE: CASE EVENT DATE: 20221130
